FAERS Safety Report 10576660 (Version 3)
Quarter: 2016Q2

REPORT INFORMATION
  Report Type: Spontaneous
  Country: US (occurrence: US)
  Receive Date: 20141111
  Receipt Date: 20160530
  Transmission Date: 20160815
  Serious: Yes (Other)
  Sender: FDA-Public Use
  Company Number: US-JNJFOC-20140901310

PATIENT
  Sex: Male

DRUGS (1)
  1. RISPERDAL [Suspect]
     Active Substance: RISPERIDONE
     Indication: BIPOLAR DISORDER
     Route: 048
     Dates: start: 20041206, end: 20050407

REACTIONS (7)
  - Hyperinsulinaemia [Unknown]
  - Obesity [Not Recovered/Not Resolved]
  - Type V hyperlipidaemia [Unknown]
  - Insulin resistance [Unknown]
  - Emotional disorder [Unknown]
  - Gynaecomastia [Unknown]
  - Delayed puberty [Unknown]
